FAERS Safety Report 14407587 (Version 1)
Quarter: 2018Q1

REPORT INFORMATION
  Report Type: Spontaneous
  Country: CA (occurrence: CA)
  Receive Date: 20180118
  Receipt Date: 20180118
  Transmission Date: 20180509
  Serious: Yes (Hospitalization)
  Sender: FDA-Public Use
  Company Number: CA-IGSA-SR10005736

PATIENT
  Age: 7 Year
  Sex: Female
  Weight: 36 kg

DRUGS (1)
  1. GAMUNEX [Suspect]
     Active Substance: HUMAN IMMUNOGLOBULIN G
     Indication: ACUTE LYMPHOCYTIC LEUKAEMIA
     Dosage: 400 MG/KG, UNK
     Route: 042

REACTIONS (4)
  - Body temperature increased [Recovered/Resolved]
  - Chills [Recovered/Resolved]
  - Emotional distress [Recovered/Resolved]
  - Hypotension [Recovered/Resolved]

NARRATIVE: CASE EVENT DATE: 20170110
